FAERS Safety Report 10968274 (Version 1)
Quarter: 2015Q1

REPORT INFORMATION
  Report Type: Spontaneous
  Country: BG (occurrence: BG)
  Receive Date: 20150330
  Receipt Date: 20150330
  Transmission Date: 20150721
  Serious: Yes (Hospitalization)
  Sender: FDA-Public Use
  Company Number: BG-B.I. PHARMACEUTICALS,INC./RIDGEFIELD-2015-BI-16028GD

PATIENT
  Age: 88 Year
  Sex: Male

DRUGS (4)
  1. DICLOFENAC DUO [Suspect]
     Active Substance: DICLOFENAC SODIUM
     Indication: PSORIATIC ARTHROPATHY
     Dosage: 75 MG
     Route: 048
  2. MOVALIS [Suspect]
     Active Substance: MELOXICAM
     Indication: PSORIATIC ARTHROPATHY
     Dosage: 15 MG
     Route: 030
  3. FOLIC ACID. [Suspect]
     Active Substance: FOLIC ACID
     Indication: PSORIATIC ARTHROPATHY
     Route: 065
  4. METHOTREXATE [Suspect]
     Active Substance: METHOTREXATE
     Indication: PSORIATIC ARTHROPATHY
     Dosage: 1.7857 MG
     Route: 048

REACTIONS (7)
  - Skin lesion [Unknown]
  - Ecchymosis [Unknown]
  - Aphthous stomatitis [Unknown]
  - Aplastic anaemia [Unknown]
  - Staphylococcal infection [Unknown]
  - Staphylococcal skin infection [Unknown]
  - Skin erosion [Unknown]
